FAERS Safety Report 26174963 (Version 1)
Quarter: 2025Q4

REPORT INFORMATION
  Report Type: Report from Study
  Country: BR (occurrence: BR)
  Receive Date: 20251218
  Receipt Date: 20251218
  Transmission Date: 20260119
  Serious: Yes (Other)
  Sender: ELI LILLY AND COMPANY
  Company Number: BR-Merck Healthcare KGaA-2025063705

PATIENT
  Sex: Female

DRUGS (4)
  1. CETUXIMAB [Suspect]
     Active Substance: CETUXIMAB
     Indication: Adenocarcinoma of colon
     Dosage: UNK UNK, WEEKLY (1/W)
     Route: 042
     Dates: start: 20241219
  2. ENCORAFENIB [Suspect]
     Active Substance: ENCORAFENIB
     Indication: Adenocarcinoma of colon
     Dosage: 4 DOSAGE FORM, UNKNOWN
     Route: 065
  3. ENCORAFENIB [Suspect]
     Active Substance: ENCORAFENIB
     Dosage: 2 DOSAGE FORM, UNKNOWN
     Route: 065
  4. OMEPRAZOLE [Concomitant]
     Active Substance: OMEPRAZOLE
     Indication: Product used for unknown indication
     Dosage: UNK

REACTIONS (5)
  - Illness [Recovering/Resolving]
  - Weight decreased [Recovering/Resolving]
  - Vomiting [Recovering/Resolving]
  - Decreased appetite [Not Recovered/Not Resolved]
  - Nausea [Recovering/Resolving]
